FAERS Safety Report 12343834 (Version 2)
Quarter: 2016Q3

REPORT INFORMATION
  Report Type: Spontaneous
  Country: IN (occurrence: IN)
  Receive Date: 20160507
  Receipt Date: 20160707
  Transmission Date: 20161109
  Serious: Yes (Death, Other)
  Sender: FDA-Public Use
  Company Number: IN-ACCORD-040244

PATIENT
  Age: 13 Year
  Sex: Male

DRUGS (5)
  1. CISPLATIN. [Suspect]
     Active Substance: CISPLATIN
     Indication: GERM CELL CANCER
     Dosage: EVERY 3 WEEKS
     Route: 042
  2. BETAMETHASONE. [Concomitant]
     Active Substance: BETAMETHASONE
     Indication: FLAGELLATE DERMATITIS
  3. CETIRIZINE [Concomitant]
     Active Substance: CETIRIZINE HYDROCHLORIDE
     Indication: FLAGELLATE DERMATITIS
     Route: 048
  4. BLEOMYCIN [Suspect]
     Active Substance: BLEOMYCIN SULFATE
     Indication: GERM CELL CANCER
     Dosage: 15 UNITS/M^2 ON DAY 01??CYCLICAL, EVERY 03 WEEK
     Route: 042
  5. ETOPOSIDE. [Suspect]
     Active Substance: ETOPOSIDE
     Indication: GERM CELL CANCER
     Dosage: EVERY 3 WEEKS
     Route: 042

REACTIONS (1)
  - Septic shock [Fatal]
